FAERS Safety Report 5320225-0 (Version None)
Quarter: 2007Q2

REPORT INFORMATION
  Report Type: 
  Country: None (occurrence: None)
  Receive Date: 20070509
  Receipt Date: 20070508
  Transmission Date: 20071010
  Serious: Yes (Hospitalization)
  Sender: FDA-Public Use
  Company Number: B0467180A

PATIENT
  Sex: Male

DRUGS (5)
  1. EPZICOM [Suspect]
     Indication: DRUG USE FOR UNKNOWN INDICATION
     Route: 048
     Dates: start: 20070411, end: 20070416
  2. KALETRA [Suspect]
     Route: 048
  3. UNKNOWN DRUG [Concomitant]
  4. ZITHROMAC [Concomitant]
     Route: 048
  5. BAKTAR [Concomitant]
     Route: 048

REACTIONS (8)
  - ANOREXIA [None]
  - BILIRUBIN CONJUGATED INCREASED [None]
  - BLOOD BILIRUBIN INCREASED [None]
  - LIVER DISORDER [None]
  - NAUSEA [None]
  - PYREXIA [None]
  - RASH [None]
  - TRANSAMINASES INCREASED [None]
